FAERS Safety Report 10407666 (Version 1)
Quarter: 2014Q3

REPORT INFORMATION
  Report Type: Spontaneous
  Country: US (occurrence: US)
  Receive Date: 20140825
  Receipt Date: 20140825
  Transmission Date: 20150326
  Serious: Yes (Other)
  Sender: FDA-Public Use
  Company Number: US-SHIRE-US201405034

PATIENT
  Age: 21 Year
  Sex: Female
  Weight: 52.15 kg

DRUGS (11)
  1. HUMIRA [Suspect]
     Active Substance: ADALIMUMAB
     Indication: COLITIS ULCERATIVE
     Dosage: 40 MG, 1X/2WKS
     Route: 058
     Dates: start: 201204, end: 201207
  2. 6-MP [Concomitant]
     Active Substance: MERCAPTOPURINE
     Dosage: 100 MG, 1X/DAY:QD
     Route: 065
     Dates: start: 20120730, end: 201305
  3. 6-MP [Concomitant]
     Active Substance: MERCAPTOPURINE
     Indication: COLITIS ULCERATIVE
     Dosage: 75 MG, 1X/DAY:QD
     Route: 065
     Dates: end: 20120729
  4. PRENATAL VITAMINS                  /02014401/ [Concomitant]
     Active Substance: VITAMINS
     Indication: PRODUCT USED FOR UNKNOWN INDICATION
     Dosage: UNK, UNKNOWN
     Route: 065
     Dates: start: 201207
  5. SULFASALAZINE. [Suspect]
     Active Substance: SULFASALAZINE
     Dosage: UNK UNK, OTHER (TWO 1500 MG PER DAY)
     Route: 065
     Dates: start: 201207
  6. IRON [Concomitant]
     Active Substance: IRON
     Indication: ANAEMIA
     Dosage: 1 DF, 1X/DAY:QD
     Route: 065
  7. HUMIRA [Suspect]
     Active Substance: ADALIMUMAB
     Dosage: 40 MG, 1X/WEEK
     Route: 058
     Dates: start: 201207, end: 201211
  8. SULFASALAZINE. [Suspect]
     Active Substance: SULFASALAZINE
     Indication: PRODUCT USED FOR UNKNOWN INDICATION
     Dosage: UNK UNK, OTHER (TWO 1500 MG PER DAY)
     Route: 065
     Dates: end: 201207
  9. 6-MP [Concomitant]
     Active Substance: MERCAPTOPURINE
     Dosage: 50 MG, 1X/DAY:QD
     Route: 065
     Dates: start: 201305
  10. IRON [Concomitant]
     Active Substance: IRON
     Dosage: 3 DF, 1X/DAY:QD
     Route: 065
  11. LIALDA [Suspect]
     Active Substance: MESALAMINE
     Indication: COLITIS ULCERATIVE
     Dosage: 4.8 G, 1X/DAY:QD (FOUR 1.2 G TABLETS)
     Route: 048
     Dates: start: 201207, end: 201207

REACTIONS (3)
  - Weight decreased [Recovering/Resolving]
  - Rectal tenesmus [Recovering/Resolving]
  - Decreased appetite [Recovering/Resolving]

NARRATIVE: CASE EVENT DATE: 201207
